FAERS Safety Report 14220400 (Version 2)
Quarter: 2019Q1

REPORT INFORMATION
  Report Type: Spontaneous
  Country: SA (occurrence: SA)
  Receive Date: 20171124
  Receipt Date: 20190122
  Transmission Date: 20190417
  Serious: Yes (Other)
  Sender: FDA-Public Use
  Company Number: PHHY2017SA171382

PATIENT
  Age: 60 Year

DRUGS (2)
  1. DICLAC [Suspect]
     Active Substance: DICLOFENAC
     Indication: ANAL FISSURE
     Dosage: 2 DF, BID
     Route: 048
     Dates: start: 20171112, end: 20171113
  2. FUSIBACT [Concomitant]
     Indication: ANAL FISSURE
     Route: 065

REACTIONS (1)
  - Urinary retention [Recovered/Resolved]

NARRATIVE: CASE EVENT DATE: 20171113
